FAERS Safety Report 18194600 (Version 3)
Quarter: 2021Q2

REPORT INFORMATION
  Report Type: Report from Study
  Country: PL (occurrence: PL)
  Receive Date: 20200825
  Receipt Date: 20210412
  Transmission Date: 20210717
  Serious: Yes (Hospitalization)
  Sender: FDA-Public Use
  Company Number: PL-SA-2019SA072791

PATIENT
  Age: 69 Year
  Sex: Male
  Weight: 87 kg

DRUGS (30)
  1. BORTEZOMIB. [Suspect]
     Active Substance: BORTEZOMIB
     Dosage: 1.3 MG/M2, OTHER (DAYS 1, 4, 8, 11 AND DAYS 22, 25, 29, 32)
     Route: 058
     Dates: start: 20180928, end: 20180928
  2. FILGRASTIM [Concomitant]
     Active Substance: FILGRASTIM
     Dosage: UNK
     Route: 058
     Dates: start: 20190221
  3. ISATUXIMAB [Suspect]
     Active Substance: ISATUXIMAB
     Indication: PLASMA CELL MYELOMA
     Dosage: 10 MG/KG, QOW
     Route: 042
     Dates: start: 20190201, end: 20190201
  4. VITAMIN D3 [Concomitant]
     Active Substance: CHOLECALCIFEROL
     Indication: PROPHYLAXIS
     Dosage: UNK
     Route: 048
     Dates: start: 20180816
  5. ZOLEDRONIC ACID [Concomitant]
     Active Substance: ZOLEDRONIC ACID
     Dosage: UNK UNK, UNK
     Route: 042
     Dates: start: 20181019
  6. BISEPTOL [Concomitant]
     Active Substance: SULFAMETHOXAZOLE\TRIMETHOPRIM
     Indication: PROPHYLAXIS
     Dosage: UNK
     Route: 048
     Dates: start: 20181109
  7. AUGMENTIN [Concomitant]
     Active Substance: AMOXICILLIN\CLAVULANATE POTASSIUM
     Dosage: UNK
     Route: 048
     Dates: start: 20190214, end: 20190221
  8. SEVREDOL [Concomitant]
     Active Substance: MORPHINE
     Dosage: UNK
     Route: 048
     Dates: start: 20180816
  9. CALPEROS [CALCIUM CARBONATE] [Concomitant]
     Active Substance: CALCIUM CARBONATE
     Indication: PROPHYLAXIS
     Dosage: UNK
     Route: 048
     Dates: start: 20180816
  10. ENALAPRIL [Concomitant]
     Active Substance: ENALAPRIL
     Dosage: UNK
     Route: 048
     Dates: start: 2005
  11. LENALIDOMIDE [Suspect]
     Active Substance: LENALIDOMIDE
     Dosage: 25 MG, QD
     Route: 048
     Dates: start: 20180928, end: 20181004
  12. ACYCLOVIR [ACICLOVIR] [Concomitant]
     Active Substance: ACYCLOVIR
     Indication: PROPHYLAXIS
     Dosage: UNK
     Route: 048
     Dates: start: 20180928
  13. RANITIDINE. [Concomitant]
     Active Substance: RANITIDINE
     Indication: PROPHYLAXIS
     Dosage: UNK
     Route: 048
     Dates: start: 20180928
  14. FILGRASTIM [Concomitant]
     Active Substance: FILGRASTIM
     Indication: PROPHYLAXIS
     Dosage: UNK
     Route: 058
     Dates: start: 20190213, end: 20190213
  15. ISATUXIMAB [Suspect]
     Active Substance: ISATUXIMAB
     Dosage: 10 MG/KG, QW
     Route: 042
     Dates: start: 20180928, end: 20180928
  16. DEXAMETHASONE. [Suspect]
     Active Substance: DEXAMETHASONE
     Indication: PLASMA CELL MYELOMA
     Dosage: 20 MG/DAY ON DAYS 1, 2, 4, 5, 8, 9, 11, 12, 15, 22, 23, 25, 26, 29, 30, 32, AND 33
     Route: 048
     Dates: start: 20190226, end: 20190226
  17. OXYCONTIN [Concomitant]
     Active Substance: OXYCODONE HYDROCHLORIDE
     Dosage: UNK
     Route: 048
     Dates: start: 20180816
  18. BISOPROLOL [Concomitant]
     Active Substance: BISOPROLOL
     Dosage: UNK
     Route: 048
     Dates: start: 2005
  19. ACARD [Concomitant]
     Dosage: UNK UNK, UNK
     Route: 048
     Dates: start: 20180920
  20. FUROSEMIDUM [FUROSEMIDE] [Concomitant]
     Active Substance: FUROSEMIDE
     Dosage: UNK UNK, UNK
     Route: 048
     Dates: start: 20180920
  21. ENOXAPARIN [Concomitant]
     Active Substance: ENOXAPARIN
     Indication: PROPHYLAXIS
     Dosage: UNK
     Route: 058
     Dates: start: 20180928
  22. BORTEZOMIB. [Suspect]
     Active Substance: BORTEZOMIB
     Indication: PLASMA CELL MYELOMA
     Dosage: 1.3 MG/M2, OTHER (DAYS 1, 4, 8, 11 AND DAYS 22, 25, 29, 32)
     Route: 058
     Dates: start: 20190225, end: 20190225
  23. PARACETAMOL [Concomitant]
     Active Substance: ACETAMINOPHEN
     Dosage: UNK UNK, UNK
     Route: 048
     Dates: start: 20180920
  24. DEXAMETHASONE. [Suspect]
     Active Substance: DEXAMETHASONE
     Dosage: 20 MG, QW
     Route: 042
     Dates: start: 20180928, end: 20180928
  25. SIMVASTATINE [Concomitant]
     Active Substance: SIMVASTATIN
     Dosage: UNK
     Route: 048
     Dates: start: 20180507
  26. OMEPRAZOL [OMEPRAZOLE] [Concomitant]
     Active Substance: OMEPRAZOLE
     Indication: PROPHYLAXIS
     Dosage: UNK
     Route: 048
     Dates: start: 20180507
  27. ALLOPURINOL. [Concomitant]
     Active Substance: ALLOPURINOL
     Indication: PROPHYLAXIS
     Dosage: UNK
     Route: 048
     Dates: start: 20180817
  28. LENALIDOMIDE [Suspect]
     Active Substance: LENALIDOMIDE
     Indication: PLASMA CELL MYELOMA
     Dosage: 25 MG, QD
     Route: 048
     Dates: start: 20190222, end: 20190228
  29. LYRICA [Concomitant]
     Active Substance: PREGABALIN
     Dosage: UNK
     Route: 048
     Dates: start: 20180816
  30. BERODUAL [Concomitant]
     Active Substance: FENOTEROL HYDROBROMIDE\IPRATROPIUM BROMIDE
     Dosage: UNK
     Route: 055
     Dates: start: 20190214, end: 20190221

REACTIONS (1)
  - Pneumonia bacterial [Recovered/Resolved]

NARRATIVE: CASE EVENT DATE: 20190227
